FAERS Safety Report 19468470 (Version 1)
Quarter: 2021Q2

REPORT INFORMATION
  Report Type: Spontaneous
  Country: US (occurrence: US)
  Receive Date: 20210628
  Receipt Date: 20210628
  Transmission Date: 20210717
  Serious: Yes (Hospitalization, Disabling)
  Sender: FDA-Public Use
  Company Number: US-TAKEDA-2021TUS039470

PATIENT
  Age: 92 Year
  Sex: Female

DRUGS (1)
  1. NINLARO [Suspect]
     Active Substance: IXAZOMIB CITRATE
     Indication: PRODUCT USED FOR UNKNOWN INDICATION
     Dosage: 3 MILLIGRAM, 1/WEEK
     Route: 065
     Dates: start: 202103, end: 202106

REACTIONS (1)
  - Drug intolerance [Unknown]

NARRATIVE: CASE EVENT DATE: 202106
